FAERS Safety Report 22298188 (Version 2)
Quarter: 2023Q2

REPORT INFORMATION
  Report Type: Other
  Country: None (occurrence: GR)
  Receive Date: 20230509
  Receipt Date: 20230529
  Transmission Date: 20230722
  Serious: Yes (Hospitalization, Other)
  Sender: FDA-Public Use
  Company Number: GR-Appco Pharma LLC-2141271

PATIENT
  Age: 47 Year
  Sex: Male

DRUGS (2)
  1. DOXYCYCLINE [Suspect]
     Active Substance: DOXYCYCLINE
     Indication: Brucellosis
     Route: 065
  2. CIPROFLOXACIN [Suspect]
     Active Substance: CIPROFLOXACIN
     Route: 065

REACTIONS (4)
  - Hepatic encephalopathy [Unknown]
  - Ascites [Unknown]
  - Pancytopenia [Unknown]
  - Pyrexia [Unknown]
